FAERS Safety Report 4292092-8 (Version None)
Quarter: 2004Q1

REPORT INFORMATION
  Report Type: 
  Country: None (occurrence: None)
  Receive Date: 20040126
  Receipt Date: 20030903
  Transmission Date: 20041129
  Serious: No
  Sender: FDA-Public Use
  Company Number: USA030946091

PATIENT
  Age: 85 Year
  Sex: Female
  Weight: 52 kg

DRUGS (7)
  1. FORTEO [Suspect]
     Indication: OSTEOPOROSIS
     Dates: start: 20030814
  2. TYLENOL [Concomitant]
  3. LEVOXYL [Concomitant]
  4. MULTIVITAMIN [Concomitant]
  5. ALLEGRA [Concomitant]
  6. TAMOXIFEN [Concomitant]
  7. MAGNESIUM [Concomitant]

REACTIONS (6)
  - CONSTIPATION [None]
  - INJECTION SITE HAEMORRHAGE [None]
  - INSOMNIA [None]
  - JOINT SWELLING [None]
  - NAUSEA [None]
  - PAIN [None]
